FAERS Safety Report 7021286-3 (Version None)
Quarter: 2010Q3

REPORT INFORMATION
  Report Type: 
  Country: None (occurrence: None)
  Receive Date: 20100929
  Receipt Date: 20100915
  Transmission Date: 20110219
  Serious: Yes (Other)
  Sender: FDA-Public Use
  Company Number: US-BRISTOL-MYERS SQUIBB COMPANY-15301120

PATIENT
  Sex: Female

DRUGS (4)
  1. ONGLYZA [Suspect]
     Indication: DIABETES MELLITUS
     Route: 048
     Dates: start: 20100524, end: 20100701
  2. METFORMIN HCL [Concomitant]
     Indication: DIABETES MELLITUS
  3. TENORMIN [Concomitant]
     Indication: BLOOD PRESSURE MANAGEMENT
  4. RAMIPRIL [Concomitant]
     Indication: PROPHYLAXIS

REACTIONS (1)
  - LYMPHOCYTIC LEUKAEMIA [None]
